FAERS Safety Report 20361070 (Version 1)
Quarter: 2022Q1

REPORT INFORMATION
  Report Type: Report from Study
  Country: DE (occurrence: DE)
  Receive Date: 20220121
  Receipt Date: 20220121
  Transmission Date: 20220424
  Serious: Yes (Death, Other)
  Sender: FDA-Public Use
  Company Number: DE-JNJFOC-20220136845

PATIENT
  Age: 9 Decade
  Sex: Male
  Weight: 49 kg

DRUGS (3)
  1. BORTEZOMIB [Suspect]
     Active Substance: BORTEZOMIB
     Indication: Plasma cell myeloma
     Dosage: 2 MILLIGRAM
     Route: 065
     Dates: start: 20210215, end: 20210316
  2. BORTEZOMIB [Suspect]
     Active Substance: BORTEZOMIB
     Dosage: 1.9 MILLIGRAM
     Route: 065
     Dates: start: 20210215, end: 20210316
  3. REVLIMID [Suspect]
     Active Substance: LENALIDOMIDE
     Indication: Plasma cell myeloma
     Dosage: 25 MILLIGRAM
     Route: 065
     Dates: start: 20210215, end: 20210316

REACTIONS (1)
  - Death [Fatal]

NARRATIVE: CASE EVENT DATE: 20210319
